FAERS Safety Report 14890581 (Version 1)
Quarter: 2018Q2

REPORT INFORMATION
  Report Type: Report from Study
  Country: LV (occurrence: LV)
  Receive Date: 20180514
  Receipt Date: 20180514
  Transmission Date: 20180711
  Serious: Yes (Death, Hospitalization)
  Sender: FDA-Public Use
  Company Number: LV-ROCHE-2086457

PATIENT
  Age: 73 Year
  Sex: Male

DRUGS (27)
  1. ATORVASTATIN [Concomitant]
     Active Substance: ATORVASTATIN
     Indication: DYSLIPIDAEMIA
     Route: 048
     Dates: start: 2013
  2. FILGRASTIM [Concomitant]
     Active Substance: FILGRASTIM
     Indication: FEBRILE NEUTROPENIA
     Route: 058
     Dates: start: 20171204, end: 20171204
  3. AUGMENTIN [Concomitant]
     Active Substance: AMOXICILLIN\CLAVULANATE POTASSIUM
     Indication: FEBRILE NEUTROPENIA
     Dosage: 1 OTHER?875/125MG
     Route: 048
     Dates: start: 20171207, end: 20171210
  4. LEXOTANIL [Concomitant]
     Active Substance: BROMAZEPAM
     Route: 048
     Dates: start: 20171122
  5. FLUCONAZOLE. [Concomitant]
     Active Substance: FLUCONAZOLE
     Indication: NEUTROPENIA
     Route: 048
     Dates: start: 20180203
  6. ATEZOLIZUMAB. [Suspect]
     Active Substance: ATEZOLIZUMAB
     Indication: SMALL CELL LUNG CANCER EXTENSIVE STAGE
     Route: 042
     Dates: start: 20171122
  7. NOLIPREL FORTE [Concomitant]
     Indication: ESSENTIAL HYPERTENSION
     Dosage: 1 OTHER
     Route: 048
     Dates: start: 2013
  8. AMOXICILLIN/CLAVULANATE [Concomitant]
     Active Substance: AMOXICILLIN\CLAVULANATE POTASSIUM
     Indication: FEBRILE NEUTROPENIA
     Dosage: 1 OTHER FLACON
     Route: 042
     Dates: start: 20171203, end: 20171206
  9. AUGMENTIN [Concomitant]
     Active Substance: AMOXICILLIN\CLAVULANATE POTASSIUM
     Route: 048
     Dates: start: 20180206, end: 20180207
  10. DIGOXINUM [Concomitant]
     Indication: ATRIAL FIBRILLATION
     Route: 048
     Dates: start: 20171207
  11. ONDANSETRON [Concomitant]
     Active Substance: ONDANSETRON
     Indication: VOMITING
     Route: 042
     Dates: start: 20171122
  12. METFORMIN [Concomitant]
     Active Substance: METFORMIN HYDROCHLORIDE
     Indication: DIABETES MELLITUS
     Route: 048
     Dates: start: 201709
  13. BISOPROLOL [Concomitant]
     Active Substance: BISOPROLOL
     Indication: ATRIAL FIBRILLATION
     Route: 048
     Dates: start: 20171130
  14. ETOPOSIDE PHOSPHATE [Suspect]
     Active Substance: ETOPOSIDE PHOSPHATE
     Indication: SMALL CELL LUNG CANCER EXTENSIVE STAGE
     Dosage: STARTED ON 22/NOV/2017, DOSE 180 MG
     Route: 042
  15. ULTRACOD [Concomitant]
     Indication: CHEST PAIN
     Dosage: 1 OTHER?500MG/30MG
     Route: 048
     Dates: start: 20171101
  16. FUROSEMIDE. [Concomitant]
     Active Substance: FUROSEMIDE
     Indication: FEBRILE NEUTROPENIA
     Route: 048
     Dates: start: 20171208
  17. SPIRIX [Concomitant]
     Active Substance: SPIRONOLACTONE
     Indication: FEBRILE NEUTROPENIA
     Route: 048
     Dates: start: 20171207
  18. CARBOPLATIN. [Suspect]
     Active Substance: CARBOPLATIN
     Indication: SMALL CELL LUNG CANCER EXTENSIVE STAGE
     Dosage: STARTED ON 22/NOV/2017, TARGET AREA UNDER THE CURVE (AUC)= 5 MILLIGRAMS PER MILLILITER PER MINUTE
     Route: 042
  19. HJERTEMAGNYL [Concomitant]
     Active Substance: ASPIRIN\MAGNESIUM OXIDE
     Indication: MYOCARDIAL INFARCTION
     Route: 048
     Dates: start: 2013
  20. FILGRASTIM [Concomitant]
     Active Substance: FILGRASTIM
     Route: 058
     Dates: start: 20180203, end: 20180203
  21. AMOXICILLIN/CLAVULANATE [Concomitant]
     Active Substance: AMOXICILLIN\CLAVULANATE POTASSIUM
     Route: 042
     Dates: start: 20180203, end: 20180205
  22. ATEZOLIZUMAB. [Suspect]
     Active Substance: ATEZOLIZUMAB
     Route: 042
     Dates: start: 20180123
  23. CIPROFLOXACINUM [Concomitant]
     Indication: FEBRILE NEUTROPENIA
     Route: 042
     Dates: start: 20171203, end: 20171206
  24. BLINDED TRILACICLIB [Suspect]
     Active Substance: TRILACICLIB
     Indication: SMALL CELL LUNG CANCER EXTENSIVE STAGE
     Route: 042
     Dates: start: 20171122
  25. NEBILET [Concomitant]
     Active Substance: NEBIVOLOL
     Indication: MYOCARDIAL INFARCTION
     Route: 048
     Dates: start: 2013, end: 20171129
  26. CIPROFLOXACINUM [Concomitant]
     Route: 042
     Dates: start: 20171207, end: 20171208
  27. TAZOCIN [Concomitant]
     Active Substance: PIPERACILLIN SODIUM\TAZOBACTAM SODIUM
     Indication: INFECTIOUS PLEURAL EFFUSION
     Route: 042
     Dates: start: 20180302, end: 20180306

REACTIONS (1)
  - Infectious pleural effusion [Fatal]

NARRATIVE: CASE EVENT DATE: 20180302
